FAERS Safety Report 24164618 (Version 9)
Quarter: 2024Q4

REPORT INFORMATION
  Report Type: Spontaneous
  Country: JP (occurrence: JP)
  Receive Date: 20240801
  Receipt Date: 20241230
  Transmission Date: 20250115
  Serious: Yes (Hospitalization)
  Sender: ELI LILLY AND COMPANY
  Company Number: JP-NShinyaku-EVA202405027ZZLILLY

PATIENT
  Age: 59 Year
  Sex: Male
  Weight: 71.8 kg

DRUGS (10)
  1. TADALAFIL [Suspect]
     Active Substance: TADALAFIL
     Indication: Pulmonary arterial hypertension
     Dosage: 40 MG, DAILY
     Route: 048
     Dates: start: 20240510, end: 20240625
  2. TADALAFIL [Suspect]
     Active Substance: TADALAFIL
     Dosage: 20 MG, DAILY
     Route: 048
     Dates: start: 20240625
  3. UPTRAVI [Suspect]
     Active Substance: SELEXIPAG
     Indication: Pulmonary arterial hypertension
     Dosage: 0.4 MG, DAILY
     Route: 048
     Dates: start: 20240613
  4. UPTRAVI [Suspect]
     Active Substance: SELEXIPAG
     Dosage: 0.8 MG, DAILY
     Route: 048
     Dates: start: 2024
  5. OPSUMIT [Suspect]
     Active Substance: MACITENTAN
     Indication: Pulmonary arterial hypertension
     Dosage: 10 MG, DAILY
     Route: 048
     Dates: start: 20240529
  6. AZOSEMIDE [Suspect]
     Active Substance: AZOSEMIDE
     Indication: Oedema due to cardiac disease
     Dosage: 60 MG, DAILY
     Route: 048
     Dates: start: 20240527, end: 20240625
  7. AZOSEMIDE [Suspect]
     Active Substance: AZOSEMIDE
     Dosage: 30 MG, DAILY
     Route: 048
     Dates: start: 20240625
  8. OLMESARTAN [Suspect]
     Active Substance: OLMESARTAN
     Indication: Hypertension
     Dosage: 10 MG, DAILY
     Route: 048
     Dates: start: 20240608, end: 20240625
  9. LOKELMA [Concomitant]
     Active Substance: SODIUM ZIRCONIUM CYCLOSILICATE
     Indication: Renal impairment
     Dosage: UNKNOWN
     Route: 048
     Dates: start: 20240625
  10. CALCIUM GLUCONATE [Concomitant]
     Active Substance: CALCIUM GLUCONATE
     Dosage: UNK
     Dates: start: 20240625

REACTIONS (11)
  - Hyperkalaemia [Recovering/Resolving]
  - Renal impairment [Recovering/Resolving]
  - Dehydration [Recovering/Resolving]
  - Hypoaesthesia [Not Recovered/Not Resolved]
  - Arthralgia [Not Recovered/Not Resolved]
  - Arthralgia [Not Recovered/Not Resolved]
  - Arthralgia [Not Recovered/Not Resolved]
  - Arthralgia [Not Recovered/Not Resolved]
  - Hypotension [Unknown]
  - Oedema peripheral [Not Recovered/Not Resolved]
  - Blood pressure decreased [Recovering/Resolving]

NARRATIVE: CASE EVENT DATE: 20240625
